FAERS Safety Report 6757003-1 (Version None)
Quarter: 2010Q2

REPORT INFORMATION
  Report Type: 
  Country: None (occurrence: None)
  Receive Date: 20100604
  Receipt Date: 20100527
  Transmission Date: 20101027
  Serious: Yes (Hospitalization, Other)
  Sender: FDA-Public Use
  Company Number: US-ABBOTT-10P-163-0647760-00

PATIENT
  Sex: Male
  Weight: 90.8 kg

DRUGS (2)
  1. HUMIRA [Suspect]
     Indication: RHEUMATOID ARTHRITIS
     Dates: start: 20090601
  2. HUMIRA [Suspect]
     Indication: CROHN'S DISEASE

REACTIONS (6)
  - CRUSH INJURY [None]
  - MUSCLE RUPTURE [None]
  - RIB FRACTURE [None]
  - SCAPULA FRACTURE [None]
  - TENDON RUPTURE [None]
  - WOUND [None]
